FAERS Safety Report 9617580 (Version 2)
Quarter: 2013Q4

REPORT INFORMATION
  Report Type: Spontaneous
  Country: US (occurrence: US)
  Receive Date: 20131011
  Receipt Date: 20131114
  Transmission Date: 20140711
  Serious: No
  Sender: FDA-Public Use
  Company Number: US-PFIZER INC-2013288615

PATIENT
  Age: 75 Year
  Sex: Female
  Weight: 68.03 kg

DRUGS (1)
  1. CYTOMEL [Suspect]
     Indication: HYPOTHYROIDISM
     Dosage: 5 MG, 2X/DAY
     Route: 048

REACTIONS (1)
  - Reaction to drug excipients [Unknown]
